FAERS Safety Report 12343319 (Version 1)
Quarter: 2016Q2

REPORT INFORMATION
  Report Type: Spontaneous
  Country: US (occurrence: US)
  Receive Date: 20160506
  Receipt Date: 20160506
  Transmission Date: 20160815
  Serious: No
  Sender: FDA-Public Use
  Company Number: US-GLAXOSMITHKLINE-US2016061391

PATIENT
  Age: 57 Year
  Sex: Female

DRUGS (2)
  1. MEMBERS MARK NICOTINE [Suspect]
     Active Substance: NICOTINE
     Indication: SMOKING CESSATION THERAPY
     Dosage: 21 MG, UNK
     Dates: start: 20160415
  2. MEMBERS MARK NICOTINE [Suspect]
     Active Substance: NICOTINE
     Dosage: UNK

REACTIONS (4)
  - Drug ineffective [Unknown]
  - Application site erythema [Unknown]
  - Application site pain [Unknown]
  - Application site paraesthesia [Unknown]
